FAERS Safety Report 8844120 (Version 2)
Quarter: 2013Q2

REPORT INFORMATION
  Report Type: Spontaneous
  Country: US (occurrence: US)
  Receive Date: 20121016
  Receipt Date: 20130503
  Transmission Date: 20140414
  Serious: Yes (Other)
  Sender: FDA-Public Use
  Company Number: US-INCYTE CORPORATION-2012IN002012

PATIENT
  Age: 70 Year
  Sex: Male
  Weight: 94.79 kg

DRUGS (1)
  1. JAKAFI [Suspect]
     Indication: MYELOFIBROSIS
     Dosage: 15 MG, BID
     Route: 048
     Dates: start: 20120517

REACTIONS (2)
  - Retinal tear [Recovering/Resolving]
  - Visual acuity reduced [Recovering/Resolving]
